FAERS Safety Report 13358150 (Version 1)
Quarter: 2017Q1

REPORT INFORMATION
  Report Type: Spontaneous
  Country: US (occurrence: US)
  Receive Date: 20170321
  Receipt Date: 20170321
  Transmission Date: 20170429
  Serious: Yes (Hospitalization)
  Sender: FDA-Public Use
  Company Number: None

PATIENT
  Age: 39 Year
  Sex: Male
  Weight: 69.75 kg

DRUGS (2)
  1. NOVOLOG [Concomitant]
     Active Substance: INSULIN ASPART
  2. LANTUS [Suspect]
     Active Substance: INSULIN GLARGINE
     Indication: DIABETES MELLITUS
     Dosage: QUANTITY:1 INJECTION(S);?
     Route: 058

REACTIONS (4)
  - Musculoskeletal pain [None]
  - Headache [None]
  - Muscle strain [None]
  - Periarthritis [None]

NARRATIVE: CASE EVENT DATE: 20170320
